FAERS Safety Report 5378677-6 (Version None)
Quarter: 2007Q3

REPORT INFORMATION
  Report Type: 
  Country: None (occurrence: None)
  Receive Date: 20070702
  Receipt Date: 20070702
  Transmission Date: 20080115
  Serious: Yes (Other)
  Sender: FDA-Public Use
  Company Number: None

PATIENT
  Age: 65 Year
  Sex: Male
  Weight: 114.3065 kg

DRUGS (1)
  1. METFORMIN HCL [Suspect]
     Indication: TYPE 2 DIABETES MELLITUS
     Dosage: TID -3 X DAY- PO
     Route: 048
     Dates: start: 20070509, end: 20070628

REACTIONS (2)
  - BLOOD GLUCOSE INCREASED [None]
  - PHARMACEUTICAL PRODUCT COMPLAINT [None]
